FAERS Safety Report 5683523-7 (Version None)
Quarter: 2008Q1

REPORT INFORMATION
  Report Type: 
  Country: None (occurrence: None)
  Receive Date: 20080326
  Receipt Date: 20080310
  Transmission Date: 20080703
  Serious: Yes (Other)
  Sender: FDA-Public Use
  Company Number: 2008US000681

PATIENT
  Age: 74 Year
  Sex: Female

DRUGS (7)
  1. AMBISOME [Suspect]
     Indication: SYSTEMIC MYCOSIS
     Dosage: 250 MG, UID/QD, IV NOS
     Route: 042
     Dates: start: 20080206, end: 20080213
  2. BACTRIM DS [Suspect]
     Indication: PNEUMOCYSTIS JIROVECI PNEUMONIA
     Dosage: IV NOS
     Route: 042
     Dates: start: 20080126, end: 20080220
  3. VANCOMYCIN HYDROCHLORIDE [Suspect]
     Indication: STAPHYLOCOCCAL INFECTION
     Dosage: 1 G, UID/QD, IV NOS; 0.5 G, UID/QD, IV NOS
     Route: 042
     Dates: start: 20080206, end: 20080206
  4. VANCOMYCIN HYDROCHLORIDE [Suspect]
     Indication: STAPHYLOCOCCAL INFECTION
     Dosage: 1 G, UID/QD, IV NOS; 0.5 G, UID/QD, IV NOS
     Route: 042
     Dates: start: 20080207, end: 20080213
  5. MEROPENEM TRIHYDRATE (MEROPENEM TRIHYDRATE) [Concomitant]
  6. ANTITHROMBIN III (ANTITHROMBIN III) [Concomitant]
  7. HEPARIN [Concomitant]

REACTIONS (11)
  - ALANINE AMINOTRANSFERASE INCREASED [None]
  - ASPARTATE AMINOTRANSFERASE INCREASED [None]
  - BLOOD ALKALINE PHOSPHATASE INCREASED [None]
  - BLOOD LACTATE DEHYDROGENASE INCREASED [None]
  - CONDITION AGGRAVATED [None]
  - GAMMA-GLUTAMYLTRANSFERASE INCREASED [None]
  - HAEMATOCRIT DECREASED [None]
  - HAEMOGLOBIN DECREASED [None]
  - LIVER DISORDER [None]
  - METHICILLIN-RESISTANT STAPHYLOCOCCAL AUREUS TEST POSITIVE [None]
  - RESPIRATORY FAILURE [None]
